FAERS Safety Report 25886107 (Version 2)
Quarter: 2025Q4

REPORT INFORMATION
  Report Type: Spontaneous
  Country: CA (occurrence: CA)
  Receive Date: 20251006
  Receipt Date: 20251014
  Transmission Date: 20260117
  Serious: Yes (Other)
  Sender: SANOFI AVENTIS
  Company Number: CA-DialogSolutions-SAAVPROD-PI826735-C1

PATIENT
  Age: 18 Year
  Sex: Female

DRUGS (10)
  1. ANTI-THYMOCYTE GLOBULIN (RABBIT) NOS [Suspect]
     Active Substance: LAPINE T-LYMPHOCYTE IMMUNE GLOBULIN
     Dosage: UNK
     Route: 042
     Dates: start: 2018
  2. FLUDARABINE PHOSPHATE [Suspect]
     Active Substance: FLUDARABINE PHOSPHATE
     Indication: Haemophagocytic lymphohistiocytosis
     Dosage: UNK
     Route: 042
     Dates: start: 201810, end: 201810
  3. PREDNISONE [Suspect]
     Active Substance: PREDNISONE
     Indication: T-cell lymphocytosis
     Dosage: UNK
     Dates: start: 200908
  4. MYCOPHENOLATE MOFETIL [Suspect]
     Active Substance: MYCOPHENOLATE MOFETIL
     Indication: T-cell lymphocytosis
     Dosage: UNK
     Dates: start: 200908
  5. METHYLPREDNISOLONE HEMISUCCINATE [Suspect]
     Active Substance: METHYLPREDNISOLONE HEMISUCCINATE
     Indication: Prophylaxis against graft versus host disease
     Dosage: UNK
     Dates: start: 200908
  6. METHOTREXATE [Suspect]
     Active Substance: METHOTREXATE
     Indication: Prophylaxis against graft versus host disease
     Dosage: UNK
     Dates: start: 2018
  7. TACROLIMUS [Suspect]
     Active Substance: TACROLIMUS
     Indication: Prophylaxis against graft versus host disease
     Dosage: UNK
     Dates: start: 2018
  8. TREOSULFAN [Suspect]
     Active Substance: TREOSULFAN
     Indication: Haemophagocytic lymphohistiocytosis
     Dosage: UNK
     Dates: start: 201810, end: 201810
  9. CYTARABINE [Suspect]
     Active Substance: CYTARABINE
     Indication: Haemophagocytic lymphohistiocytosis
     Dosage: UNK
     Dates: start: 201810, end: 201810
  10. ACYCLOVIR [Concomitant]
     Active Substance: ACYCLOVIR
     Indication: T-cell lymphocytosis
     Dosage: UNK
     Dates: start: 200908

REACTIONS (7)
  - Acute graft versus host disease [Recovered/Resolved]
  - Acute kidney injury [Not Recovered/Not Resolved]
  - Epstein-Barr viraemia [Recovered/Resolved]
  - Sepsis [Unknown]
  - Adenovirus infection [Recovered/Resolved]
  - Varicella [Recovered/Resolved]
  - Off label use [Unknown]

NARRATIVE: CASE EVENT DATE: 20180101
